FAERS Safety Report 13692653 (Version 15)
Quarter: 2018Q2

REPORT INFORMATION
  Report Type: Spontaneous
  Country: US (occurrence: US)
  Receive Date: 20170627
  Receipt Date: 20180412
  Transmission Date: 20180711
  Serious: Yes (Other)
  Sender: FDA-Public Use
  Company Number: US-PFIZER INC-2017275737

PATIENT
  Age: 68 Year
  Sex: Female
  Weight: 68.48 kg

DRUGS (11)
  1. NORCO [Concomitant]
     Active Substance: ACETAMINOPHEN\HYDROCODONE BITARTRATE
     Indication: PAIN
     Dosage: UNK UNK, AS NEEDED (Q 12 H PRN)
     Route: 048
     Dates: start: 20170412
  2. IBRANCE [Suspect]
     Active Substance: PALBOCICLIB
     Dosage: 100 MG, CYCLIC (1 CAPSULE DAILY 1-21/DAYS)
     Route: 048
     Dates: start: 20170612
  3. FEMARA [Concomitant]
     Active Substance: LETROZOLE
     Indication: BREAST CANCER METASTATIC
     Dosage: 2.5 MG, ONCE A DAY
     Route: 048
     Dates: start: 20170531
  4. IBRANCE [Suspect]
     Active Substance: PALBOCICLIB
     Dosage: 125 MG, CYCLIC (D1-D21 Q28 DAYS) (QD FOR 3 WEEKS THEN OFF FOR 1 WEEK)
     Route: 048
     Dates: start: 20170612
  5. IBRANCE [Suspect]
     Active Substance: PALBOCICLIB
     Dosage: 125 MG, CYCLIC (D1-D21 Q28 DAYS)(DAILY X 3 WEEKS, 1 WEEK OFF)
     Route: 048
  6. IBRANCE [Suspect]
     Active Substance: PALBOCICLIB
     Dosage: 100 MG, CYCLIC, (DAYS 1-21 Q28 DAYS)
     Route: 048
     Dates: start: 20170612
  7. IBRANCE [Suspect]
     Active Substance: PALBOCICLIB
     Dosage: 125 MG, CYCLIC (DAILY 3 WEEKS ON AND 1 WEEK OFF )
     Route: 048
     Dates: start: 20170531, end: 20170824
  8. FEMARA [Concomitant]
     Active Substance: LETROZOLE
     Indication: HER2 GENE AMPLIFICATION
  9. SOMA [Concomitant]
     Active Substance: CARISOPRODOL
     Indication: MUSCLE SPASMS
     Dosage: UNK, AS NEEDED (1 PO Q 8 PRN)
     Route: 048
     Dates: start: 20170926, end: 20171026
  10. IBRANCE [Suspect]
     Active Substance: PALBOCICLIB
     Indication: BREAST CANCER METASTATIC
     Dosage: 125 MG, CYCLIC (1 QD 3 WEEKS ON 1 WEEK OFF )
     Route: 048
     Dates: start: 20170531, end: 20170531
  11. IBRANCE [Suspect]
     Active Substance: PALBOCICLIB
     Dosage: 100 MG, CYCLIC (D1-21 Q28 DAYS)
     Route: 048
     Dates: start: 20170612

REACTIONS (15)
  - Rash pruritic [Recovering/Resolving]
  - Contusion [Not Recovered/Not Resolved]
  - Nasopharyngitis [Recovered/Resolved]
  - Haemorrhage [Unknown]
  - Cough [Unknown]
  - Stomatitis [Unknown]
  - Fatigue [Not Recovered/Not Resolved]
  - Constipation [Unknown]
  - Alopecia [Unknown]
  - Somnolence [Unknown]
  - Pruritus [Unknown]
  - Dysphonia [Recovered/Resolved]
  - Drug dose omission [Unknown]
  - Back disorder [Unknown]
  - Depression [Unknown]

NARRATIVE: CASE EVENT DATE: 201706
